FAERS Safety Report 6287237-4 (Version None)
Quarter: 2009Q3

REPORT INFORMATION
  Report Type: 
  Country: None (occurrence: None)
  Receive Date: 20090728
  Receipt Date: 20090715
  Transmission Date: 20100115
  Serious: Yes (Hospitalization)
  Sender: FDA-Public Use
  Company Number: PHHY2009FR29699

PATIENT
  Sex: Female

DRUGS (6)
  1. VOLTAREN [Suspect]
     Indication: ARTHRALGIA
     Dosage: 150 MG, QD
     Route: 048
     Dates: start: 20090529, end: 20090602
  2. APROVEL [Suspect]
     Dosage: 150 MG, QD
     Route: 048
     Dates: end: 20090602
  3. METFORMIN HCL [Suspect]
     Dosage: 2 DF, QD
     Route: 048
     Dates: end: 20090602
  4. DIAMICRON [Suspect]
     Dosage: 90 MG, QD
     Route: 048
     Dates: end: 20090602
  5. LASIX [Concomitant]
  6. SOTALOL [Concomitant]

REACTIONS (7)
  - BLOOD CREATININE INCREASED [None]
  - DRUG LEVEL ABOVE THERAPEUTIC [None]
  - FLUID OVERLOAD [None]
  - GENERAL PHYSICAL HEALTH DETERIORATION [None]
  - HYPERNATRAEMIA [None]
  - HYPOGLYCAEMIA [None]
  - RENAL FAILURE ACUTE [None]
